FAERS Safety Report 20097768 (Version 10)
Quarter: 2023Q1

REPORT INFORMATION
  Report Type: Report from Study
  Country: DE (occurrence: DE)
  Receive Date: 20211122
  Receipt Date: 20230324
  Transmission Date: 20230417
  Serious: Yes (Hospitalization, Disabling, Other)
  Sender: FDA-Public Use
  Company Number: DE-TAKEDA-2021TUS073567

PATIENT
  Age: 58 Year
  Sex: Male

DRUGS (24)
  1. TEDUGLUTIDE [Suspect]
     Active Substance: TEDUGLUTIDE
     Indication: Short-bowel syndrome
     Dosage: 1.9 MILLIGRAM, QD
     Route: 042
     Dates: start: 20170511, end: 201711
  2. TEDUGLUTIDE [Suspect]
     Active Substance: TEDUGLUTIDE
     Indication: Short-bowel syndrome
     Dosage: 1.9 MILLIGRAM, QD
     Route: 042
     Dates: start: 20170511, end: 201711
  3. TEDUGLUTIDE [Suspect]
     Active Substance: TEDUGLUTIDE
     Indication: Short-bowel syndrome
     Dosage: 1.9 MILLIGRAM, QD
     Route: 042
     Dates: start: 20170511, end: 201711
  4. TEDUGLUTIDE [Suspect]
     Active Substance: TEDUGLUTIDE
     Indication: Short-bowel syndrome
     Dosage: 1.9 MILLIGRAM, QD
     Route: 042
     Dates: start: 20170511, end: 201711
  5. TEDUGLUTIDE [Suspect]
     Active Substance: TEDUGLUTIDE
     Dosage: 1.9 MILLIGRAM, QD
     Route: 042
     Dates: start: 20171201, end: 201804
  6. TEDUGLUTIDE [Suspect]
     Active Substance: TEDUGLUTIDE
     Dosage: 1.9 MILLIGRAM, QD
     Route: 042
     Dates: start: 20171201, end: 201804
  7. TEDUGLUTIDE [Suspect]
     Active Substance: TEDUGLUTIDE
     Dosage: 1.9 MILLIGRAM, QD
     Route: 042
     Dates: start: 20171201, end: 201804
  8. TEDUGLUTIDE [Suspect]
     Active Substance: TEDUGLUTIDE
     Dosage: 1.9 MILLIGRAM, QD
     Route: 042
     Dates: start: 20171201, end: 201804
  9. FALITHROM [Concomitant]
     Active Substance: PHENPROCOUMON
     Indication: Product used for unknown indication
     Dosage: 3 MILLIGRAM
     Route: 048
  10. LOPERAMIDE [Concomitant]
     Active Substance: LOPERAMIDE
     Indication: Product used for unknown indication
     Dosage: 2 MILLIGRAM
     Route: 048
     Dates: start: 201806
  11. MOXIFLOXACIN [Concomitant]
     Active Substance: MOXIFLOXACIN
     Indication: Product used for unknown indication
     Dosage: 400 MILLIGRAM, QD
     Route: 048
     Dates: start: 20180115, end: 20180123
  12. CALCIUM CARBONATE\ERGOCALCIFEROL\RETINOL [Concomitant]
     Active Substance: CALCIUM CARBONATE\ERGOCALCIFEROL\RETINOL
     Indication: Product used for unknown indication
     Dosage: 0.5 MICROGRAM, QD
     Route: 048
     Dates: start: 201801, end: 201812
  13. LEVOTHYROXINE [Concomitant]
     Active Substance: LEVOTHYROXINE
     Dosage: UNK UNK, QD
     Route: 048
     Dates: start: 20220113
  14. MELATONIN [Concomitant]
     Active Substance: MELATONIN
     Dosage: 2 MILLIGRAM
     Route: 048
     Dates: start: 20220112
  15. MIRTAZAPINE [Concomitant]
     Active Substance: MIRTAZAPINE
     Indication: Adjustment disorder with depressed mood
     Dosage: 45 MILLIGRAM, QD
     Route: 048
     Dates: start: 20220112
  16. ERYTHROPOIETIN [Concomitant]
     Active Substance: ERYTHROPOIETIN
     Indication: Nephrogenic anaemia
     Dosage: 8000 INTERNATIONAL UNIT, TID
     Route: 042
     Dates: start: 20220113
  17. NAPROXEN [Concomitant]
     Active Substance: NAPROXEN
     Indication: Systemic lupus erythematosus
     Dosage: UNK
     Route: 065
     Dates: start: 20220419
  18. HYDROXYCHLOROQUINE [Concomitant]
     Active Substance: HYDROXYCHLOROQUINE
     Indication: Systemic lupus erythematosus
     Dosage: UNK
     Route: 065
     Dates: start: 202204
  19. FOLIC ACID [Concomitant]
     Active Substance: FOLIC ACID
     Indication: Vitamin supplementation
     Dosage: UNK
     Route: 065
     Dates: start: 20220330
  20. VITAMIN B12 [Concomitant]
     Active Substance: CYANOCOBALAMIN
     Indication: Supplementation therapy
     Dosage: UNK
     Route: 030
     Dates: start: 20220330
  21. PANTOPRAZOLE [Concomitant]
     Active Substance: PANTOPRAZOLE
     Indication: Prophylaxis
     Dosage: 40.00 MILLIGRAM, BID
     Route: 048
     Dates: start: 202206
  22. CALCIUM ACETATE [Concomitant]
     Active Substance: CALCIUM ACETATE
     Indication: Supplementation therapy
     Dosage: 175.00 MILLIGRAM, TID
     Route: 048
     Dates: start: 202206
  23. ATORVASTATIN [Concomitant]
     Active Substance: ATORVASTATIN
     Indication: Product used for unknown indication
     Dosage: 40.00 MILLIGRAM, QD
     Route: 048
     Dates: start: 202206
  24. HYDROXYCHLOROQUINE [Concomitant]
     Active Substance: HYDROXYCHLOROQUINE
     Indication: Systemic lupus erythematosus
     Dosage: 200.00 MILLIGRAM, BID
     Dates: start: 2022

REACTIONS (16)
  - Sepsis [Recovered/Resolved]
  - Impaired healing [Recovered/Resolved]
  - Multiple organ dysfunction syndrome [Recovered/Resolved]
  - Haemorrhoids [Recovered/Resolved]
  - Extremity necrosis [Recovered/Resolved]
  - Mitral valve incompetence [Not Recovered/Not Resolved]
  - Tricuspid valve incompetence [Not Recovered/Not Resolved]
  - Haematochezia [Recovered/Resolved]
  - Post procedural haemorrhage [Recovered/Resolved]
  - Spinal compression fracture [Not Recovered/Not Resolved]
  - Hiatus hernia [Not Recovered/Not Resolved]
  - Pleural effusion [Recovered/Resolved]
  - Ear pain [Not Recovered/Not Resolved]
  - White matter lesion [Not Recovered/Not Resolved]
  - Hypoacusis [Not Recovered/Not Resolved]
  - Large intestine polyp [Recovered/Resolved]

NARRATIVE: CASE EVENT DATE: 20210901
